FAERS Safety Report 20603548 (Version 1)
Quarter: 2022Q1

REPORT INFORMATION
  Report Type: Spontaneous
  Country: US (occurrence: None)
  Receive Date: 20220316
  Receipt Date: 20220316
  Transmission Date: 20220423
  Serious: Yes (Hospitalization)
  Sender: FDA-Public Use
  Company Number: None

PATIENT
  Age: 51 Year
  Sex: Male

DRUGS (1)
  1. ALBENDAZOLE [Suspect]
     Active Substance: ALBENDAZOLE
     Indication: Arthropod bite
     Dosage: 200 MG EVERY DAY PO
     Route: 048
     Dates: start: 20210701, end: 20210813

REACTIONS (7)
  - Hepatic enzyme increased [None]
  - Chromaturia [None]
  - Pruritus [None]
  - Pyrexia [None]
  - Pain [None]
  - Abdominal pain upper [None]
  - Chills [None]

NARRATIVE: CASE EVENT DATE: 20210811
